FAERS Safety Report 8396229 (Version 2)
Quarter: 2013Q2

REPORT INFORMATION
  Report Type: Spontaneous
  Country: US (occurrence: US)
  Receive Date: 20120208
  Receipt Date: 20130423
  Transmission Date: 20140414
  Serious: Yes (Hospitalization, Other)
  Sender: FDA-Public Use
  Company Number: US-US-EMD SERONO, INC.-233851K09USA

PATIENT
  Age: 50 Year
  Sex: Male
  Weight: 59 kg

DRUGS (3)
  1. REBIF [Suspect]
     Indication: MULTIPLE SCLEROSIS
     Route: 058
     Dates: start: 20041006
  2. BACLOFEN [Concomitant]
     Indication: MULTIPLE SCLEROSIS
  3. GABAPENTIN [Concomitant]
     Indication: MULTIPLE SCLEROSIS

REACTIONS (6)
  - Autonomic nervous system imbalance [Recovered/Resolved]
  - Osteonecrosis [Recovered/Resolved]
  - Intervertebral disc protrusion [Recovered/Resolved]
  - Fall [Unknown]
  - Dyskinesia [Unknown]
  - Mechanical urticaria [Unknown]
